FAERS Safety Report 8287077-0 (Version None)
Quarter: 2012Q2

REPORT INFORMATION
  Report Type: 
  Country: None (occurrence: None)
  Receive Date: 20120416
  Receipt Date: 20110714
  Transmission Date: 20120825
  Serious: No
  Sender: FDA-Public Use
  Company Number: US-ALLERGAN-1109578US

PATIENT
  Age: 64 Year
  Sex: Female

DRUGS (2)
  1. TEARS [Concomitant]
     Indication: CONJUNCTIVITIS INFECTIVE
     Dosage: USED 10 MINUTES APART FROM ZYMAXID DROPS
     Route: 047
  2. ZYMAXID [Suspect]
     Indication: CONJUNCTIVITIS INFECTIVE
     Dosage: 1 DROP TO BOTH EYES, 4 TIMES A DAY
     Route: 047
     Dates: start: 20110713

REACTIONS (3)
  - LACRIMATION INCREASED [None]
  - OCULAR HYPERAEMIA [None]
  - DRUG INEFFECTIVE [None]
